FAERS Safety Report 8491221 (Version 4)
Quarter: 2012Q4

REPORT INFORMATION
  Report Type: 
  Country: US (occurrence: US)
  Receive Date: 20120403
  Receipt Date: 20121221
  Transmission Date: 20130627
  Serious: Yes (Hospitalization, Other)
  Sender: FDA-Public Use
  Company Number: US-ASTRAZENECA-2012SE20721

PATIENT
  Age: 76 Year
  Sex: Male
  Weight: 69.4 kg

DRUGS (10)
  1. SYMBICORT PMDI [Suspect]
     Indication: ASTHMA
     Dosage: 160/4.5 MCG 2 PUFFS 2 TIMES EVERY DAY IN THE MORNING AND EVENING
     Route: 055
     Dates: start: 20111115
  2. SYMBICORT PMDI [Suspect]
     Indication: ASTHMA
     Dosage: 160/4.5 MCG 2 PUFFS 2 TIMES EVERY DAY IN THE MORNING AND EVENING
     Route: 055
     Dates: start: 20120214
  3. LISINOPRIL [Suspect]
     Route: 048
  4. LISINOPRIL [Suspect]
     Route: 048
     Dates: start: 20120214
  5. WARFARIN [Suspect]
     Route: 065
     Dates: start: 2005
  6. ALBUTEROL SULFATE HFA [Concomitant]
     Dosage: 90 MCG, 2 PUFF BY INHALATION ROUTE EVERY 4-6 HOURS AS NEEDED
     Dates: start: 20111219
  7. ALBUTEROL SULFATE HFA [Concomitant]
     Dosage: 90 MCG, 2 PUFF BY INHALATION ROUTE EVERY 4-6 HOURS AS NEEDED
     Dates: start: 20120214
  8. HYDROCORTISONE [Concomitant]
     Dosage: SMALL AMOUNT 2 TIMES A EVERY DAY TO THE AFFECTED AREA
     Route: 061
     Dates: start: 20111223
  9. XANAX [Concomitant]
     Indication: ANXIETY
     Dosage: 1 MG, THREE TIMES A DAY AS NEEDED
     Route: 048
     Dates: start: 20111115
  10. XANAX [Concomitant]
     Indication: ANXIETY
     Dosage: 1 MG, THREE TIMES A DAY AS NEEDED
     Route: 048
     Dates: start: 20120214

REACTIONS (11)
  - Cerebral haemorrhage [Unknown]
  - Coagulopathy [Unknown]
  - Petechiae [Unknown]
  - Multiple allergies [Unknown]
  - Dyspnoea [Unknown]
  - Pulmonary congestion [Unknown]
  - Chronic obstructive pulmonary disease [Unknown]
  - Coagulation time prolonged [Unknown]
  - Hypertension [Unknown]
  - Anxiety [Unknown]
  - Confusional state [Unknown]
